FAERS Safety Report 23377562 (Version 1)
Quarter: 2024Q1

REPORT INFORMATION
  Report Type: Report from Study
  Country: EG (occurrence: EG)
  Receive Date: 20240108
  Receipt Date: 20240108
  Transmission Date: 20240410
  Serious: Yes (Other)
  Sender: FDA-Public Use
  Company Number: EG-002147023-NVSC2021EG228976

PATIENT
  Age: 35 Year
  Sex: Male

DRUGS (11)
  1. COSENTYX [Suspect]
     Active Substance: SECUKINUMAB
     Indication: Ankylosing spondylitis
     Dosage: 150 MG, Q2MO(45-60 DAYS)
     Route: 058
     Dates: start: 20210514
  2. COSENTYX [Suspect]
     Active Substance: SECUKINUMAB
     Indication: Fatigue
     Dosage: 150 MG, QMO
     Route: 058
     Dates: start: 202108
  3. COSENTYX [Suspect]
     Active Substance: SECUKINUMAB
     Dosage: 150 MG, QMO
     Route: 058
     Dates: start: 202201
  4. COSENTYX [Suspect]
     Active Substance: SECUKINUMAB
     Dosage: 150 MG, QMO
     Route: 065
     Dates: start: 202305
  5. CATAFLAM [Concomitant]
     Active Substance: DICLOFENAC POTASSIUM
     Indication: Ankylosing spondylitis
     Dosage: 1 DF, UNKNOWN(WHEN NEEDED)
     Route: 048
     Dates: start: 2020
  6. ARCOXIA [Concomitant]
     Active Substance: ETORICOXIB
     Indication: Ankylosing spondylitis
     Dosage: 1 DF, UNKNOWN(OCCASIONALLY WHEN NEEDED)
     Route: 065
     Dates: start: 202103
  7. DUPHALAC [Concomitant]
     Active Substance: LACTULOSE
     Indication: Constipation
     Dosage: UNK UNK, QD
     Route: 065
     Dates: start: 202109
  8. DUPHALAC [Concomitant]
     Active Substance: LACTULOSE
     Indication: Anal fissure
  9. NITROGLYCERIN [Concomitant]
     Active Substance: NITROGLYCERIN
     Indication: Anal fissure
     Dosage: UNK UNK, TID
     Route: 065
     Dates: start: 202109
  10. NITROGLYCERIN [Concomitant]
     Active Substance: NITROGLYCERIN
     Indication: Constipation
  11. CRESTOR [Concomitant]
     Active Substance: ROSUVASTATIN CALCIUM
     Indication: Blood cholesterol
     Dosage: 1 DOSAGE FORM, QD, (1 TABLET 10 MG, BEFORE SLEEP)
     Route: 065
     Dates: start: 202302

REACTIONS (17)
  - Colitis [Unknown]
  - Gastrointestinal pain [Not Recovered/Not Resolved]
  - Diarrhoea [Not Recovered/Not Resolved]
  - Gastroenteritis [Recovered/Resolved]
  - Anal fissure [Recovering/Resolving]
  - Sacroiliac joint dysfunction [Not Recovered/Not Resolved]
  - Device issue [Not Recovered/Not Resolved]
  - Fatigue [Not Recovered/Not Resolved]
  - Joint swelling [Not Recovered/Not Resolved]
  - Pain [Recovering/Resolving]
  - Arthritis [Recovering/Resolving]
  - Disease recurrence [Recovering/Resolving]
  - Drug dose omission by device [Not Recovered/Not Resolved]
  - Product use in unapproved indication [Unknown]
  - Incorrect dose administered [Unknown]
  - Inappropriate schedule of product administration [Unknown]
  - Off label use [Unknown]

NARRATIVE: CASE EVENT DATE: 20210514
